FAERS Safety Report 8035835-X (Version None)
Quarter: 2012Q1

REPORT INFORMATION
  Report Type: 
  Country: None (occurrence: None)
  Receive Date: 20120111
  Receipt Date: 20120111
  Transmission Date: 20120608
  Serious: Yes (Life-Threatening, Other)
  Sender: FDA-Public Use
  Company Number: None

PATIENT
  Age: 49 Year
  Sex: Female
  Weight: 58.967 kg

DRUGS (1)
  1. EXCEDRIN (MIGRAINE) [Suspect]
     Indication: PAIN IN EXTREMITY
     Dosage: 2 EXCEDRIN
     Dates: start: 20111015, end: 20111015

REACTIONS (4)
  - FEELING ABNORMAL [None]
  - FEELING DRUNK [None]
  - LOSS OF CONSCIOUSNESS [None]
  - HANGOVER [None]
